FAERS Safety Report 5726497-2 (Version None)
Quarter: 2008Q2

REPORT INFORMATION
  Report Type: 
  Country: None (occurrence: None)
  Receive Date: 20080502
  Receipt Date: 20080418
  Transmission Date: 20081010
  Serious: Yes (Death, Hospitalization)
  Sender: FDA-Public Use
  Company Number: JP-GENENTECH-260291

PATIENT
  Sex: Female

DRUGS (8)
  1. BEVACIZUMAB [Suspect]
     Indication: RECTAL CANCER RECURRENT
     Dosage: 5 MG/KG, QD
     Route: 042
     Dates: start: 20070629, end: 20080111
  2. OXALIPLATIN [Suspect]
     Indication: RECTAL CANCER RECURRENT
     Dosage: UNK, UNKNOWN
     Route: 042
     Dates: end: 20070629
  3. FLUOROURACIL [Suspect]
     Indication: RECTAL CANCER RECURRENT
     Dosage: UNK, UNKNOWN
     Route: 065
     Dates: end: 20080113
  4. ISOVORIN [Suspect]
     Indication: RECTAL CANCER RECURRENT
     Dosage: UNK, UNKNOWN
     Route: 065
     Dates: end: 20080111
  5. OXYCONTIN [Concomitant]
     Indication: DRUG USE FOR UNKNOWN INDICATION
     Dates: start: 20070629, end: 20080111
  6. LASIX [Concomitant]
     Indication: DRUG USE FOR UNKNOWN INDICATION
     Dates: start: 20070629, end: 20080111
  7. DECADRON [Concomitant]
     Indication: DRUG USE FOR UNKNOWN INDICATION
     Dates: start: 20070629, end: 20080111
  8. ZOFRAN [Concomitant]
     Indication: DRUG USE FOR UNKNOWN INDICATION
     Dates: start: 20070629, end: 20080111

REACTIONS (2)
  - DEATH [None]
  - PNEUMONIA [None]
